FAERS Safety Report 10694259 (Version 2)
Quarter: 2015Q1

REPORT INFORMATION
  Report Type: Spontaneous
  Country: US (occurrence: US)
  Receive Date: 20150106
  Receipt Date: 20150106
  Transmission Date: 20150721
  Serious: No
  Sender: FDA-Public Use
  Company Number: US-BAUSCH-SYM-2013-11256

PATIENT
  Sex: Female

DRUGS (4)
  1. XENAZINE [Suspect]
     Active Substance: TETRABENAZINE
     Route: 048
     Dates: start: 201311, end: 201311
  2. XENAZINE [Suspect]
     Active Substance: TETRABENAZINE
     Dosage: 25 MG IN THE MORNING AND 12.5 MG IN THE EVENING.
     Route: 048
     Dates: start: 201312
  3. XENAZINE [Suspect]
     Active Substance: TETRABENAZINE
     Indication: HUNTINGTON^S DISEASE
     Route: 048
     Dates: end: 20130922
  4. SLEEPING PILL [Concomitant]
     Indication: SLEEP DISORDER

REACTIONS (6)
  - Insomnia [Unknown]
  - Mood altered [Recovered/Resolved]
  - Anxiety [Unknown]
  - Dysarthria [Unknown]
  - Dyskinesia [Not Recovered/Not Resolved]
  - Crying [Recovered/Resolved]

NARRATIVE: CASE EVENT DATE: 2013
